FAERS Safety Report 6806719-7 (Version None)
Quarter: 2010Q2

REPORT INFORMATION
  Report Type: 
  Country: None (occurrence: None)
  Receive Date: 20100628
  Receipt Date: 20100628
  Transmission Date: 20101027
  Serious: Yes (Other)
  Sender: FDA-Public Use
  Company Number: None

PATIENT
  Age: 18 Year
  Sex: Male
  Weight: 72.5755 kg

DRUGS (1)
  1. ALDARA [Suspect]
     Indication: SKIN PAPILLOMA
     Dosage: INDIVIDUAL DOSE PACKAGE 3X WEEKLY TOP; APPROX 3 WEEKS
     Route: 061

REACTIONS (1)
  - HERPES ZOSTER [None]
